FAERS Safety Report 5046652-7 (Version None)
Quarter: 2006Q3

REPORT INFORMATION
  Report Type: 
  Country: None (occurrence: None)
  Receive Date: 20060707
  Receipt Date: 20060707
  Transmission Date: 20061208
  Serious: Yes (Other)
  Sender: FDA-Public Use
  Company Number: None

PATIENT
  Sex: Female

DRUGS (6)
  1. ABILIFY [Suspect]
     Dosage: 30 MGM DAILY PO
     Route: 048
     Dates: start: 20031101
  2. ABILIFY [Suspect]
     Dosage: 30 MGM DAILY PO
     Route: 048
     Dates: start: 20050301
  3. NOVOLOG [Concomitant]
  4. LANTUS [Concomitant]
  5. HYDROCHLOROTHIAZIDE [Concomitant]
  6. POTASSIUM [Concomitant]

REACTIONS (3)
  - BLOOD GLUCOSE INCREASED [None]
  - CONDITION AGGRAVATED [None]
  - IMPAIRED GASTRIC EMPTYING [None]
